FAERS Safety Report 4330420-5 (Version None)
Quarter: 2004Q2

REPORT INFORMATION
  Report Type: 
  Country: None (occurrence: None)
  Receive Date: 20040402
  Receipt Date: 20030416
  Transmission Date: 20050107
  Serious: No
  Sender: FDA-Public Use
  Company Number: US-BRISTOL-MYERS SQUIBB COMPANY-12244588

PATIENT
  Age: 48 Year
  Sex: Female

DRUGS (2)
  1. HYDREA [Suspect]
     Indication: THROMBOCYTHAEMIA
     Dates: start: 19980101
  2. DOXYCYCLINE [Concomitant]
     Indication: SINUSITIS
     Dates: start: 20030409

REACTIONS (2)
  - PERIORBITAL HAEMATOMA [None]
  - SINUSITIS [None]
